FAERS Safety Report 10126341 (Version 1)
Quarter: 2014Q2

REPORT INFORMATION
  Report Type: Spontaneous
  Country: US (occurrence: US)
  Receive Date: 20140427
  Receipt Date: 20140427
  Transmission Date: 20141212
  Serious: Yes (Hospitalization)
  Sender: FDA-Public Use
  Company Number: US-BRISTOL-MYERS SQUIBB COMPANY-20643409

PATIENT
  Age: 68 Year
  Sex: Female
  Weight: 77.1 kg

DRUGS (5)
  1. WARFARIN SODIUM [Suspect]
     Indication: ATRIAL FIBRILLATION
     Dosage: COUMADIN -15 YEARS AGO?GEN WARFARIN:7.5MG FOR 3 DAYS THEN 5MG FOR 2 DAYS
  2. LOSARTAN [Concomitant]
  3. ASPIRIN [Concomitant]
  4. SIMVASTATIN [Concomitant]
  5. MULTIVITAMIN [Concomitant]

REACTIONS (3)
  - Gallbladder disorder [Unknown]
  - Cardiac disorder [Unknown]
  - International normalised ratio fluctuation [Unknown]
